FAERS Safety Report 12455885 (Version 1)
Quarter: 2016Q2

REPORT INFORMATION
  Report Type: Spontaneous
  Country: IT (occurrence: IT)
  Receive Date: 20160610
  Receipt Date: 20160610
  Transmission Date: 20160815
  Serious: Yes (Hospitalization, Other)
  Sender: FDA-Public Use
  Company Number: PHHY2016IT080029

PATIENT
  Age: 83 Year
  Sex: Male
  Weight: 83 kg

DRUGS (1)
  1. DICLOFENAC [Suspect]
     Active Substance: DICLOFENAC
     Indication: PRODUCT USED FOR UNKNOWN INDICATION
     Dosage: 100 MG, QD
     Route: 048
     Dates: start: 20160215, end: 20160422

REACTIONS (5)
  - Gastric ulcer [Unknown]
  - Hyperaemia [Unknown]
  - Dizziness [Unknown]
  - Asthenia [Unknown]
  - Gastritis [Unknown]

NARRATIVE: CASE EVENT DATE: 20160422
